FAERS Safety Report 6624174-7 (Version None)
Quarter: 2010Q1

REPORT INFORMATION
  Report Type: 
  Country: None (occurrence: None)
  Receive Date: 20100310
  Receipt Date: 20091028
  Transmission Date: 20100710
  Serious: No
  Sender: FDA-Public Use
  Company Number: US-BIOGENIDEC-2009BI034742

PATIENT
  Age: 54 Year
  Sex: Male

DRUGS (3)
  1. AVONEX [Suspect]
     Indication: MULTIPLE SCLEROSIS
     Route: 030
     Dates: start: 20030101
  2. AVONEX [Suspect]
     Route: 030
     Dates: end: 20050101
  3. AVONEX [Suspect]
     Route: 030
     Dates: start: 20091024

REACTIONS (3)
  - ABASIA [None]
  - FEELING ABNORMAL [None]
  - HYPOTONIA [None]
